FAERS Safety Report 5213982-5 (Version None)
Quarter: 2007Q1

REPORT INFORMATION
  Report Type: 
  Country: None (occurrence: None)
  Receive Date: 20070122
  Receipt Date: 20070111
  Transmission Date: 20070707
  Serious: Yes (Hospitalization, Other)
  Sender: FDA-Public Use
  Company Number: US-JNJFOC-20070102883

PATIENT
  Sex: Female
  Weight: 43.55 kg

DRUGS (7)
  1. DURAGESIC-100 [Suspect]
     Route: 062
  2. DURAGESIC-100 [Suspect]
     Dosage: 2X 100 UG/HR PATCHES
     Route: 062
  3. DURAGESIC-100 [Suspect]
     Indication: PAIN
     Route: 062
  4. LASIX [Concomitant]
     Indication: RENAL FAILURE
     Route: 048
  5. POTASSIUM ACETATE [Concomitant]
     Indication: BLOOD POTASSIUM DECREASED
     Route: 048
  6. PHENOBARBITAL TAB [Concomitant]
     Indication: CONVULSION
     Route: 048
  7. KLONOPIN [Concomitant]
     Indication: CONVULSION
     Route: 048

REACTIONS (5)
  - DRUG INEFFECTIVE [None]
  - GRAND MAL CONVULSION [None]
  - INFLUENZA LIKE ILLNESS [None]
  - LOSS OF CONSCIOUSNESS [None]
  - WRONG TECHNIQUE IN DRUG USAGE PROCESS [None]
